FAERS Safety Report 14476617 (Version 6)
Quarter: 2019Q1

REPORT INFORMATION
  Report Type: Spontaneous
  Country: US (occurrence: US)
  Receive Date: 20180201
  Receipt Date: 20190305
  Transmission Date: 20190417
  Serious: Yes (Other)
  Sender: FDA-Public Use
  Company Number: US-SA-2017SA242000

PATIENT
  Age: 71 Year
  Sex: Female
  Weight: 64.41 kg

DRUGS (33)
  1. ALBUTEROL SULFATE. [Concomitant]
     Active Substance: ALBUTEROL SULFATE
     Dosage: UNK UNK,PRN
     Route: 065
     Dates: start: 20130124
  2. VERAPAMIL [Concomitant]
     Active Substance: VERAPAMIL HYDROCHLORIDE
     Dosage: 1 DF,HS
     Route: 065
     Dates: start: 20160120
  3. STADOL [Concomitant]
     Active Substance: BUTORPHANOL TARTRATE
     Dosage: UNK
  4. DIAZEPAM. [Concomitant]
     Active Substance: DIAZEPAM
     Dosage: 5 MG, QD
     Route: 048
  5. MAGNESIUM GLUCONATE [Concomitant]
     Active Substance: MAGNESIUM GLUCONATE
     Dosage: 500 MG, QD
     Route: 048
  6. NITROGLYCERIN. [Concomitant]
     Active Substance: NITROGLYCERIN
     Indication: CHEST PAIN
     Dosage: 1 DF, PRN
     Route: 048
  7. ALBUTEROL SULFATE. [Concomitant]
     Active Substance: ALBUTEROL SULFATE
     Dosage: UNK UNK,PRN
     Route: 055
     Dates: start: 20130225
  8. VALIUM [Concomitant]
     Active Substance: DIAZEPAM
     Dosage: .5 DF,UNK
  9. OXYCODONE [Concomitant]
     Active Substance: OXYCODONE
     Indication: PAIN
     Dosage: UNK UNK,PRN
     Route: 065
     Dates: start: 20170105
  10. PRAVASTATIN. [Concomitant]
     Active Substance: PRAVASTATIN
     Dosage: UNK
  11. GABAPENTIN. [Concomitant]
     Active Substance: GABAPENTIN
     Dosage: 2 DF (300 MG)
     Route: 048
  12. PROMETHAZINE [Concomitant]
     Active Substance: PROMETHAZINE\PROMETHAZINE HYDROCHLORIDE
     Dosage: 12.5 MG, QD
     Route: 048
  13. RANEXA [Concomitant]
     Active Substance: RANOLAZINE
     Dosage: 2 DF, BID
     Route: 048
  14. MAGNESIUM OXIDE. [Concomitant]
     Active Substance: MAGNESIUM OXIDE
     Dosage: UNK UNK,QD
     Route: 065
  15. PROMETHAZINE [Concomitant]
     Active Substance: PROMETHAZINE\PROMETHAZINE HYDROCHLORIDE
     Dosage: .5 DF,QD
     Route: 065
  16. CODEINE PHOSPHATE;PARACETAMOL;SALICYLAMIDE [Concomitant]
     Dosage: 1 DF,QID
     Route: 048
     Dates: start: 20020409
  17. VITAMIN D3 [Concomitant]
     Active Substance: CHOLECALCIFEROL
     Dosage: 1000 DF,QD
     Route: 065
  18. FUROSEMIDE. [Concomitant]
     Active Substance: FUROSEMIDE
     Dosage: 20 MG, QD
     Route: 048
  19. MELATONIN [Concomitant]
     Active Substance: MELATONIN
     Dosage: 5 MG, QD
     Route: 048
  20. PRALUENT [Suspect]
     Active Substance: ALIROCUMAB
     Indication: HYPERLIPIDAEMIA
     Dosage: 75 MG,QOW
     Route: 058
     Dates: start: 201709, end: 201806
  21. CRESTOR [Concomitant]
     Active Substance: ROSUVASTATIN CALCIUM
     Dosage: 1 DF, THREE TIMES PER WEEK
     Route: 065
  22. COENZYME Q10 [Concomitant]
     Active Substance: UBIDECARENONE
     Dosage: 400 MG,QD
     Route: 065
  23. NITROSTAT [Concomitant]
     Active Substance: NITROGLYCERIN
     Dosage: 1 DF,PRN
     Route: 065
     Dates: start: 20110627
  24. SIMVASTATIN. [Concomitant]
     Active Substance: SIMVASTATIN
     Dosage: UNK
  25. NEBIVOLOL. [Concomitant]
     Active Substance: NEBIVOLOL
     Dosage: 5 MG, QD
     Route: 048
  26. PRALUENT [Suspect]
     Active Substance: ALIROCUMAB
     Indication: HYPERCHOLESTEROLAEMIA
  27. ZETIA [Concomitant]
     Active Substance: EZETIMIBE
     Dosage: 10 MG, QD
  28. ROSUVASTATIN. [Concomitant]
     Active Substance: ROSUVASTATIN
     Dosage: 10 MG, THREE TIMES PER WEEK
     Route: 048
  29. VALACYCLOVIR HCL [Concomitant]
     Active Substance: VALACYCLOVIR HYDROCHLORIDE
     Dosage: 500 MG, QD
     Route: 048
  30. EXCEDRIN MIGRAINE [Concomitant]
     Active Substance: ACETAMINOPHEN\ASPIRIN\CAFFEINE
     Dosage: UNK UNK,QD
     Route: 065
  31. BYSTOLIC [Concomitant]
     Active Substance: NEBIVOLOL HYDROCHLORIDE
     Dosage: UNK UNK,HS
     Route: 065
  32. CLONAZEPAM. [Concomitant]
     Active Substance: CLONAZEPAM
     Dosage: 2 DF,HS
     Route: 065
     Dates: start: 20140710
  33. OMEPRAZOLE. [Concomitant]
     Active Substance: OMEPRAZOLE
     Dosage: 20 MG, QD
     Route: 048

REACTIONS (23)
  - Nodule [Not Recovered/Not Resolved]
  - Skin haemorrhage [Unknown]
  - Blood creatinine increased [Recovered/Resolved]
  - Haemoglobin decreased [Unknown]
  - Alanine aminotransferase increased [Unknown]
  - Red blood cell count decreased [Unknown]
  - Angina pectoris [Unknown]
  - Albumin globulin ratio increased [Not Recovered/Not Resolved]
  - Injection site haemorrhage [Recovering/Resolving]
  - Psoriasis [Not Recovered/Not Resolved]
  - High density lipoprotein increased [Not Recovered/Not Resolved]
  - Influenza [Unknown]
  - Vasculitis [Not Recovered/Not Resolved]
  - Haemorrhagic vasculitis [Recovered/Resolved]
  - Carbon dioxide increased [Recovered/Resolved]
  - Oral herpes [Not Recovered/Not Resolved]
  - Lymphocyte count decreased [Unknown]
  - Protein total decreased [Not Recovered/Not Resolved]
  - Product dose omission [Unknown]
  - Blood calcium decreased [Unknown]
  - Mean cell volume increased [Unknown]
  - Headache [Not Recovered/Not Resolved]
  - Device use issue [Unknown]

NARRATIVE: CASE EVENT DATE: 2017
